FAERS Safety Report 5293924-7 (Version None)
Quarter: 2007Q2

REPORT INFORMATION
  Report Type: 
  Country: None (occurrence: None)
  Receive Date: 20070411
  Receipt Date: 20070331
  Transmission Date: 20071010
  Serious: Yes (Other)
  Sender: FDA-Public Use
  Company Number: US-PFIZER INC-2007026456

PATIENT
  Sex: Female
  Weight: 108.9 kg

DRUGS (10)
  1. PROVERA [Suspect]
     Indication: MENSTRUAL DISCOMFORT
     Route: 048
  2. HYZAAR [Concomitant]
     Route: 048
  3. PRINIVIL [Concomitant]
     Route: 048
  4. NORVASC [Concomitant]
     Route: 048
  5. KLOR-CON [Concomitant]
     Route: 048
  6. SIMVASTATIN [Concomitant]
     Indication: HYPERCHOLESTEROLAEMIA
     Route: 048
  7. KEPPRA [Concomitant]
     Route: 048
  8. GLUCOPHAGE [Concomitant]
     Route: 048
  9. ACTOS [Concomitant]
     Route: 048
  10. NIFEREX [Concomitant]
     Indication: MINERAL SUPPLEMENTATION
     Route: 048

REACTIONS (1)
  - THYROID CANCER [None]
